FAERS Safety Report 7236239-X (Version None)
Quarter: 2011Q1

REPORT INFORMATION
  Report Type: 
  Country: None (occurrence: None)
  Receive Date: 20110120
  Receipt Date: 20110113
  Transmission Date: 20110831
  Serious: Yes (Hospitalization)
  Sender: FDA-Public Use
  Company Number: AU-MERCK-1101USA01445

PATIENT
  Age: 68 Year
  Sex: Male
  Weight: 62 kg

DRUGS (2)
  1. ZOCOR [Suspect]
     Indication: METABOLIC DISORDER
     Route: 048
     Dates: start: 20080812
  2. LIPITOR [Suspect]
     Indication: METABOLIC DISORDER
     Route: 048
     Dates: end: 20080812

REACTIONS (5)
  - RHABDOMYOLYSIS [None]
  - ASTHENIA [None]
  - BLOOD CREATINE PHOSPHOKINASE INCREASED [None]
  - HYPERPHAGIA [None]
  - PAIN IN EXTREMITY [None]
